FAERS Safety Report 9311637 (Version 2)
Quarter: 2013Q2

REPORT INFORMATION
  Report Type: Report from Study
  Country: US (occurrence: US)
  Receive Date: 20130528
  Receipt Date: 20130625
  Transmission Date: 20140414
  Serious: Yes (Death, Life-Threatening, Hospitalization, Other)
  Sender: FDA-Public Use
  Company Number: US-BAYER-2013-063781

PATIENT
  Age: 56 Year
  Sex: Male
  Weight: 123.7 kg

DRUGS (20)
  1. SORAFENIB (RAF KINASE INHIBITOR) [Suspect]
     Indication: CHOLANGIOCARCINOMA
     Dosage: 800 MG DAILY
     Route: 048
     Dates: start: 20130425, end: 20130516
  2. PEMETREXED [Suspect]
     Indication: CHOLANGIOCARCINOMA
     Dosage: 500 MG/M2, EVERY 14 DAYS
     Route: 042
     Dates: start: 20130425, end: 20130509
  3. BISACODYL [Concomitant]
     Dosage: 5 MG, DAILY/ AS NEEDED
     Route: 048
  4. DEXAMETHASONE [Concomitant]
     Dosage: 4 MG, BID ON DAYS BEFORE AND AFTER PEMETREXED
     Route: 048
  5. FOLIC ACID [Concomitant]
     Dosage: 1 MG, QD
     Route: 048
  6. HYDRALAZINE [Concomitant]
     Dosage: 50 MG, BID
     Route: 048
  7. HYDROCHLOROTHIAZIDE [Concomitant]
     Dosage: 25 MG, QD
     Route: 048
  8. METOPROLOL [Concomitant]
     Dosage: 25 MG, BID
     Route: 048
  9. OXYCODONE [Concomitant]
     Dosage: 10 MG, EVERY 6 HOURS AS NEEDED
     Route: 048
  10. PANTOPRAZOLE [Concomitant]
     Dosage: 40 MG, QD
     Route: 048
  11. PROCHLORPERAZINE [Concomitant]
     Dosage: 10 MG, EVERY 6 HOURS AS NEEDED
     Route: 048
  12. SENNA [Concomitant]
     Dosage: 1 DF, BID
     Route: 048
  13. DOCUSATE [Concomitant]
     Dosage: 100 MG, EVERY 12 HOURS
     Route: 048
  14. ESOMEPRAZOLE [Concomitant]
     Dosage: 40MG, BEFORE BREAKFAST AND BEFORE DINNER
     Route: 048
  15. LACTULOSE [Concomitant]
     Dosage: 30ML, SYRUP, PO/NG, EVERY 4 HOURS
     Route: 048
  16. PHYTONADIONE [Concomitant]
     Dosage: DAILY DOSE 10 MG
     Route: 048
  17. MIRALAX [Concomitant]
     Dosage: DAILY DOSE 17 G
     Route: 048
  18. ONDASETRON [Concomitant]
     Dosage: 4MG, OLUTION, IV PUSH, EVERY 6 HOURS PRN
     Route: 042
  19. HYDROMORPHONE [Concomitant]
     Dosage: 100 ML, UNK
     Route: 042
  20. AMLODIPINE [Concomitant]

REACTIONS (5)
  - Myocardial infarction [Fatal]
  - Hyperkalaemia [Fatal]
  - Hepatic failure [None]
  - Renal failure acute [None]
  - Hepatic encephalopathy [None]
